FAERS Safety Report 11365276 (Version 2)
Quarter: 2015Q3

REPORT INFORMATION
  Report Type: Spontaneous
  Country: FR (occurrence: JP)
  Receive Date: 20150811
  Receipt Date: 20150903
  Transmission Date: 20151125
  Serious: Yes (Hospitalization)
  Sender: FDA-Public Use
  Company Number: JP-FRI-1000078835

PATIENT

DRUGS (1)
  1. MILNACIPRAN [Suspect]
     Active Substance: MILNACIPRAN
     Indication: DEPRESSION
     Route: 048

REACTIONS (1)
  - Phaeochromocytoma [Not Recovered/Not Resolved]
